FAERS Safety Report 4705340-4 (Version None)
Quarter: 2005Q2

REPORT INFORMATION
  Report Type: 
  Country: None (occurrence: None)
  Receive Date: 20050630
  Receipt Date: 20050630
  Transmission Date: 20051028
  Serious: Yes (Other)
  Sender: FDA-Public Use
  Company Number: None

PATIENT
  Age: 15 Year
  Sex: Male
  Weight: 69.8539 kg

DRUGS (5)
  1. LEXAPRO [Suspect]
     Dosage: 10 MG PO QD
     Route: 048
     Dates: start: 20040816, end: 20041215
  2. ADDERALL [Concomitant]
  3. DEPAKOTE [Concomitant]
  4. CLONIDINE [Concomitant]
  5. ABILIFY [Concomitant]

REACTIONS (1)
  - AGGRESSION [None]
